FAERS Safety Report 18349835 (Version 2)
Quarter: 2020Q4

REPORT INFORMATION
  Report Type: Spontaneous
  Country: US (occurrence: US)
  Receive Date: 20201006
  Receipt Date: 20201105
  Transmission Date: 20210114
  Serious: Yes (Hospitalization, Other)
  Sender: FDA-Public Use
  Company Number: US-JNJFOC-A-US2017-157990

PATIENT
  Age: 41 Year
  Sex: Male
  Weight: 86.26 kg

DRUGS (9)
  1. COUMADIN [Concomitant]
     Active Substance: WARFARIN SODIUM
     Dosage: 5 MG, UNK
  2. RESTORIL [Concomitant]
     Active Substance: TEMAZEPAM
     Dosage: 15 MG, UNK
  3. VELETRI [Suspect]
     Active Substance: EPOPROSTENOL
     Dosage: 32 NG/KG, PER MIN
     Route: 042
     Dates: start: 20160412
  4. NEURONTIN [Concomitant]
     Active Substance: GABAPENTIN
     Dosage: 200 MG, UNK
  5. WARFARIN [Concomitant]
     Active Substance: WARFARIN
  6. LETAIRIS [Concomitant]
     Active Substance: AMBRISENTAN
  7. VELETRI [Suspect]
     Active Substance: EPOPROSTENOL
     Indication: PULMONARY HYPERTENSION
     Dosage: 40 NG/KG, PER MIN
     Route: 042
  8. VELETRI [Suspect]
     Active Substance: EPOPROSTENOL
     Dosage: 30 NG/KG, PER MIN
     Route: 042
     Dates: start: 20160412
  9. VELETRI [Suspect]
     Active Substance: EPOPROSTENOL
     Route: 042

REACTIONS (15)
  - Headache [Not Recovered/Not Resolved]
  - Thrombosis in device [Recovered/Resolved]
  - Dysentery [Unknown]
  - Flushing [Not Recovered/Not Resolved]
  - Underdose [Unknown]
  - Device occlusion [Unknown]
  - Device alarm issue [Not Recovered/Not Resolved]
  - Catheter management [Unknown]
  - Device occlusion [Unknown]
  - Dyspnoea [Recovered/Resolved]
  - Atrial septal defect repair [Unknown]
  - Feeling hot [Unknown]
  - Migraine [Unknown]
  - Drug dose omission by device [Recovered/Resolved]
  - Diarrhoea [Not Recovered/Not Resolved]

NARRATIVE: CASE EVENT DATE: 20170706
